FAERS Safety Report 9658315 (Version 2)
Quarter: 2013Q4

REPORT INFORMATION
  Report Type: Spontaneous
  Country: US (occurrence: US)
  Receive Date: 20131030
  Receipt Date: 20131030
  Transmission Date: 20140711
  Serious: Yes (Hospitalization, Other)
  Sender: FDA-Public Use
  Company Number: US-NAPPMUNDI-USA-2012-0081325

PATIENT
  Age: 87 Year
  Sex: Female

DRUGS (2)
  1. OXYCONTIN (NDA 22-272) [Suspect]
     Indication: BACK PAIN
     Dosage: 20 MG, BID
     Route: 048
     Dates: start: 20120110, end: 20120113
  2. PERCOCET /00446701/ [Suspect]
     Indication: BACK PAIN
     Dosage: UNK, Q6H PRN
     Route: 048

REACTIONS (3)
  - Hallucination [Unknown]
  - Confusional state [Unknown]
  - Intentional drug misuse [Unknown]
